FAERS Safety Report 23920795 (Version 2)
Quarter: 2024Q3

REPORT INFORMATION
  Report Type: Spontaneous
  Country: US (occurrence: US)
  Receive Date: 20240530
  Receipt Date: 20240917
  Transmission Date: 20241017
  Serious: No
  Sender: SANOFI AVENTIS
  Company Number: US-SA-SAC20240528000859

PATIENT
  Age: 53 Year
  Sex: Female

DRUGS (1)
  1. DUPIXENT [Suspect]
     Active Substance: DUPILUMAB
     Indication: Dermatitis atopic
     Dosage: 300 MG, 1X
     Route: 058
     Dates: start: 20240527, end: 20240527

REACTIONS (11)
  - Scratch [Unknown]
  - Dry skin [Unknown]
  - Eye pain [Unknown]
  - Scab [Unknown]
  - Skin weeping [Unknown]
  - Skin haemorrhage [Unknown]
  - Pruritus [Unknown]
  - Therapeutic response decreased [Unknown]
  - Skin exfoliation [Unknown]
  - Accidental exposure to product [Unknown]
  - Exposure via skin contact [Unknown]

NARRATIVE: CASE EVENT DATE: 20240527
